FAERS Safety Report 7733618-9 (Version None)
Quarter: 2011Q3

REPORT INFORMATION
  Report Type: 
  Country: None (occurrence: None)
  Receive Date: 20110907
  Receipt Date: 20110829
  Transmission Date: 20111222
  Serious: Yes (Hospitalization)
  Sender: FDA-Public Use
  Company Number: JP-BRISTOL-MYERS SQUIBB COMPANY-16028185

PATIENT
  Age: 73 Year
  Sex: Male

DRUGS (2)
  1. PARAPLATIN [Suspect]
     Indication: LUNG SQUAMOUS CELL CARCINOMA STAGE IV
  2. TAXOL [Suspect]
     Indication: LUNG SQUAMOUS CELL CARCINOMA STAGE IV

REACTIONS (1)
  - HEPATITIS B [None]
